FAERS Safety Report 10232996 (Version 1)
Quarter: 2014Q2

REPORT INFORMATION
  Report Type: Spontaneous
  Country: US (occurrence: US)
  Receive Date: 20140612
  Receipt Date: 20140612
  Transmission Date: 20141212
  Serious: No
  Sender: FDA-Public Use
  Company Number: US-PFIZER INC-2014159088

PATIENT
  Age: 13 Year
  Sex: Male

DRUGS (2)
  1. GENOTROPIN [Suspect]
     Indication: DWARFISM
     Dosage: 1.8 MG, DAILY
     Route: 058
     Dates: start: 201405
  2. GENOTROPIN [Suspect]
     Indication: HYPOPITUITARISM

REACTIONS (1)
  - Headache [Recovered/Resolved]
